FAERS Safety Report 7001954-X (Version None)
Quarter: 2010Q3

REPORT INFORMATION
  Report Type: 
  Country: None (occurrence: None)
  Receive Date: 20100920
  Receipt Date: 20100916
  Transmission Date: 20110219
  Serious: Yes (Hospitalization)
  Sender: FDA-Public Use
  Company Number: A0881475A

PATIENT
  Age: 46 Year
  Sex: Male

DRUGS (10)
  1. FLOVENT [Suspect]
     Indication: CHRONIC OBSTRUCTIVE PULMONARY DISEASE
     Dosage: 1PUFF FOUR TIMES PER DAY
     Route: 055
     Dates: start: 20040601
  2. ATROVENT [Concomitant]
  3. ATROVENT [Concomitant]
  4. SPIRIVA [Concomitant]
  5. XOPENEX [Concomitant]
  6. XOPENEX [Concomitant]
  7. SINGULAIR [Concomitant]
  8. VALIUM [Concomitant]
  9. DEMEROL [Concomitant]
  10. XANAX [Concomitant]

REACTIONS (5)
  - ASTHMA [None]
  - CHRONIC OBSTRUCTIVE PULMONARY DISEASE [None]
  - DRUG INTOLERANCE [None]
  - HYPERVENTILATION [None]
  - PANIC ATTACK [None]
